FAERS Safety Report 19835548 (Version 1)
Quarter: 2021Q3

REPORT INFORMATION
  Report Type: Spontaneous
  Country: NL (occurrence: NL)
  Receive Date: 20210915
  Receipt Date: 20210915
  Transmission Date: 20211014
  Serious: Yes (Death, Life-Threatening, Hospitalization)
  Sender: FDA-Public Use
  Company Number: NL-FRESENIUS KABI-FK202109705

PATIENT
  Age: 68 Year
  Sex: Female
  Weight: 78 kg

DRUGS (6)
  1. LEVOTHYROXINE. [Concomitant]
     Active Substance: LEVOTHYROXINE
     Indication: PRODUCT USED FOR UNKNOWN INDICATION
     Dosage: 1 X PER DAY 1 PIECE ?LEVOTHYROXINE CAPSULE 125 MCG
     Route: 065
  2. ESOMEPRAZOLE. [Concomitant]
     Active Substance: ESOMEPRAZOLE MAGNESIUM
     Indication: PRODUCT USED FOR UNKNOWN INDICATION
     Dosage: 1 X PER DAY 40 MILLIGRAM ?ESOMEPRAZOLE 40 MG ? GASTRO?RESISTANT TABLET
  3. MACROGOL [Concomitant]
     Active Substance: POLYETHYLENE GLYCOLS
     Indication: PRODUCT USED FOR UNKNOWN INDICATION
     Dosage: 1 TO 2 X PER DAY 1 PIECE ?MACROGOL/SALTS POWDER FOR DRINK (MOVICOLON+GENERIC) / BRAND NAME NOT SPECI
  4. OXALIPLATIN (MANUFACTURER UNKNOWN) [Suspect]
     Active Substance: OXALIPLATIN
     Indication: COLON CANCER
     Dosage: 190 MG?OXALIPLATIN 5 MG/ML ? CONCENTRATE FOR SOLUTION FOR INFUSION
     Route: 065
     Dates: start: 20210622, end: 20210702
  5. CAPECITABINE. [Suspect]
     Active Substance: CAPECITABINE
     Indication: COLON CANCER
     Dosage: 2 TIMES PER DAY 1800 MG?CAPECITABINE 500 MG ? FILM?COATED TABLET
     Dates: start: 20210622, end: 20210702
  6. LORAZEPAM. [Concomitant]
     Active Substance: LORAZEPAM
     Indication: PRODUCT USED FOR UNKNOWN INDICATION
     Dosage: LORAZEPAM 1 MG ? TABLET

REACTIONS (1)
  - Stevens-Johnson syndrome [Fatal]

NARRATIVE: CASE EVENT DATE: 20210701
